FAERS Safety Report 15298584 (Version 1)
Quarter: 2018Q4

REPORT INFORMATION
  Report Type: Spontaneous
  Country: JP (occurrence: JP)
  Receive Date: 20180820
  Receipt Date: 20180820
  Transmission Date: 20190204
  Serious: Yes (Hospitalization)
  Sender: FDA-Public Use
  Company Number: JP-NAPPMUNDI-GBR-2017-0043761

PATIENT
  Age: 69 Year
  Sex: Male

DRUGS (28)
  1. PROGRAF [Suspect]
     Active Substance: TACROLIMUS\TACROLIMUS ANHYDROUS
     Indication: CHRONIC GRAFT VERSUS HOST DISEASE
     Dosage: 0.4 MG, DAILY
     Route: 048
  2. IMUNACE 35 [Concomitant]
     Indication: CHRONIC GRAFT VERSUS HOST DISEASE
     Dosage: 1.3 ML, DAILY
     Route: 058
     Dates: start: 20161219, end: 20170210
  3. MS REISHIPPU [Concomitant]
     Active Substance: CAMPHOR\MENTHOL\METHYL SALICYLATE
     Indication: BACK PAIN
     Dosage: UNK
     Dates: start: 20161019
  4. LANSOPRAZOLE. [Concomitant]
     Active Substance: LANSOPRAZOLE
     Indication: PEPTIC ULCER
     Dosage: 15 MG, DAILY
  5. BETAMETHASONE SODIUM PHOSPHATE [Concomitant]
     Active Substance: BETAMETHASONE SODIUM PHOSPHATE
     Indication: POSTOPERATIVE CARE
     Dosage: UNK
     Dates: start: 20170130
  6. BRONUCK [Concomitant]
     Active Substance: BROMFENAC SODIUM
     Indication: POSTOPERATIVE CARE
     Dosage: UNK
     Dates: start: 20170130
  7. PREDONINE [Suspect]
     Active Substance: PREDNISOLONE
     Indication: CHRONIC GRAFT VERSUS HOST DISEASE
     Dosage: 20 MG, DAILY
     Route: 048
  8. FEBUXOSTAT. [Concomitant]
     Active Substance: FEBUXOSTAT
     Indication: BLOOD URIC ACID INCREASED
     Dosage: 20 MG, DAILY
     Route: 048
  9. FUROSEMIDE. [Concomitant]
     Active Substance: FUROSEMIDE
     Indication: OEDEMA PERIPHERAL
     Dosage: 40 MG, DAILY
     Route: 048
     Dates: start: 20160721
  10. LOCOID [Concomitant]
     Active Substance: HYDROCORTISONE BUTYRATE
     Indication: CHRONIC GRAFT VERSUS HOST DISEASE
     Dosage: UNK
     Dates: end: 20170104
  11. ALENDRONATE [Concomitant]
     Active Substance: ALENDRONATE SODIUM
     Indication: OSTEOPOROSIS PROPHYLAXIS
     Dosage: 35 MG, DAILY
     Dates: start: 20160816
  12. LAC-B [Concomitant]
     Active Substance: BIFIDOBACTERIUM SPP.
     Indication: PROPHYLAXIS AGAINST DIARRHOEA
     Dosage: 3 G, DAILY
     Route: 048
  13. IMUNACE 35 [Concomitant]
     Dosage: 1.3 ML, DAILY
     Route: 058
     Dates: start: 20160721, end: 20161026
  14. ITRIZOLE [Concomitant]
     Active Substance: ITRACONAZOLE
     Indication: FUNGAL INFECTION
     Dosage: 20 MG, DAILY
     Route: 048
  15. LOPERAMIDE HYDROCHLORIDE. [Concomitant]
     Active Substance: LOPERAMIDE HYDROCHLORIDE
     Indication: PROPHYLAXIS AGAINST DIARRHOEA
     Dosage: 2 G, DAILY
     Route: 048
  16. HYALEIN MINI [Concomitant]
     Active Substance: HYALURONATE SODIUM
     Indication: CHRONIC GRAFT VERSUS HOST DISEASE
  17. CALFINA [Concomitant]
     Active Substance: ALFACALCIDOL
     Indication: SPINAL COMPRESSION FRACTURE
     Dosage: 1 MCG, DAILY
     Route: 048
     Dates: start: 20170119
  18. TERIPARATIDE ACETATE [Concomitant]
     Active Substance: TERIPARATIDE ACETATE
     Indication: OSTEOPOROSIS PROPHYLAXIS
     Dosage: 56.5 MCG, DAILY
     Route: 058
     Dates: start: 20161125
  19. IMUNACE 35 [Concomitant]
     Dosage: 1.3 ML, DAILY
     Route: 058
     Dates: start: 20161107, end: 20161205
  20. SALAGEN [Concomitant]
     Active Substance: PILOCARPINE HYDROCHLORIDE
     Indication: CHRONIC GRAFT VERSUS HOST DISEASE
     Dosage: 5 MG, DAILY
     Route: 048
  21. LEVOFLOXACIN. [Concomitant]
     Active Substance: LEVOFLOXACIN
     Indication: C-REACTIVE PROTEIN INCREASED
     Dosage: 500 MG, DAILY
     Route: 048
     Dates: start: 20161106
  22. BIOFERMIN R [Concomitant]
     Active Substance: BACILLUS SUBTILIS\LACTOBACILLUS ACIDOPHILUS\STREPTOCOCCUS FAECAIS
     Indication: PROPHYLAXIS AGAINST DIARRHOEA
     Dosage: 3 DF, DAILY
     Route: 048
     Dates: start: 20170111
  23. OXINORM (OXYCODONE HYDROCHLORIDE) [Suspect]
     Active Substance: OXYCODONE HYDROCHLORIDE
     Indication: BACK PAIN
     Dosage: UNK
     Route: 048
     Dates: start: 20161028
  24. CALONAL [Concomitant]
     Active Substance: ACETAMINOPHEN
     Indication: BACK PAIN
     Dosage: 1600 MG, DAILY
     Route: 048
     Dates: start: 20161019
  25. MUCOSTA [Concomitant]
     Active Substance: REBAMIPIDE
     Indication: CHRONIC GRAFT VERSUS HOST DISEASE
  26. AZULENE [Concomitant]
     Active Substance: AZULENE
     Indication: CHRONIC GRAFT VERSUS HOST DISEASE
  27. CRAVIT [Concomitant]
     Active Substance: LEVOFLOXACIN
     Indication: POSTOPERATIVE CARE
     Dosage: UNK
     Dates: start: 20170130
  28. ATOVAQUONE. [Concomitant]
     Active Substance: ATOVAQUONE
     Indication: PNEUMOCYSTIS JIROVECII PNEUMONIA
     Dosage: 10 MG, DAILY
     Route: 048

REACTIONS (1)
  - Lung infection [Recovered/Resolved]

NARRATIVE: CASE EVENT DATE: 20161028
